FAERS Safety Report 26037840 (Version 1)
Quarter: 2025Q4

REPORT INFORMATION
  Report Type: Spontaneous
  Country: US (occurrence: US)
  Receive Date: 20251112
  Receipt Date: 20251112
  Transmission Date: 20260117
  Serious: Yes (Other)
  Sender: BRACCO
  Company Number: US-BRACCO-2025US03075

PATIENT
  Age: 72 Year
  Sex: Male

DRUGS (21)
  1. LUMASON [Suspect]
     Active Substance: SULFUR HEXAFLUORIDE
     Indication: Echocardiogram
     Dosage: 1 ML, SINGLE
     Route: 042
     Dates: start: 20250513, end: 20250513
  2. LUMASON [Suspect]
     Active Substance: SULFUR HEXAFLUORIDE
     Indication: Echocardiogram
     Dosage: 1 ML, SINGLE
     Route: 042
     Dates: start: 20250513, end: 20250513
  3. LUMASON [Suspect]
     Active Substance: SULFUR HEXAFLUORIDE
     Indication: Echocardiogram
     Dosage: 1 ML, SINGLE
     Route: 042
     Dates: start: 20250513, end: 20250513
  4. AMIODARONE HYDROCHLORIDE [Concomitant]
     Active Substance: AMIODARONE HYDROCHLORIDE
  5. SODIUM BICARBONATE [Concomitant]
     Active Substance: SODIUM BICARBONATE
  6. CEFEPIME [Concomitant]
     Active Substance: CEFEPIME HYDROCHLORIDE
  7. DEXTROSE\WATER [Concomitant]
     Active Substance: DEXTROSE\WATER
  8. DOBUTAMINE [Concomitant]
     Active Substance: DOBUTAMINE HYDROCHLORIDE
     Indication: Echocardiogram
     Dosage: UNK
     Dates: start: 20250510, end: 20250510
  9. DOCUSATE [Concomitant]
     Active Substance: DOCUSATE
  10. EPINEPHRINE [Concomitant]
     Active Substance: EPINEPHRINE
  11. INSULIN NOS [Concomitant]
     Active Substance: INSULIN NOS
  12. METHYLENE BLUE ANHYDROUS [Concomitant]
     Active Substance: METHYLENE BLUE ANHYDROUS
     Route: 042
  13. METRONIDAZOLE [Concomitant]
     Active Substance: METRONIDAZOLE
  14. MIRALAX [Concomitant]
     Active Substance: POLYETHYLENE GLYCOL 3350
  15. NOREPINEPHRINE [Concomitant]
     Active Substance: NOREPINEPHRINE
  16. OXYCODONE [Concomitant]
     Active Substance: OXYCODONE
  17. PANTOPRAZOLE [Concomitant]
     Active Substance: PANTOPRAZOLE
  18. PHOXILLUM BK4/2.5 [Concomitant]
     Active Substance: CALCIUM CHLORIDE\MAGNESIUM CHLORIDE\POTASSIUM CHLORIDE\SODIUM BICARBONATE\SODIUM CHLORIDE\SODIUM PHO
  19. RITALIN [Concomitant]
     Active Substance: METHYLPHENIDATE HYDROCHLORIDE
  20. VANCOMYCIN [Concomitant]
     Active Substance: VANCOMYCIN
  21. VASOPRESSIN [Concomitant]
     Active Substance: VASOPRESSIN

REACTIONS (1)
  - Hypotension [Not Recovered/Not Resolved]

NARRATIVE: CASE EVENT DATE: 20250513
